FAERS Safety Report 19168618 (Version 19)
Quarter: 2025Q1

REPORT INFORMATION
  Report Type: Spontaneous
  Country: US (occurrence: US)
  Receive Date: 20210422
  Receipt Date: 20250221
  Transmission Date: 20250408
  Serious: Yes (Other)
  Sender: PFIZER
  Company Number: US-PFIZER INC-2021334761

PATIENT
  Age: 76 Year
  Sex: Female
  Weight: 81.633 kg

DRUGS (14)
  1. IBRANCE [Suspect]
     Active Substance: PALBOCICLIB
     Indication: Breast cancer female
     Dates: start: 2018, end: 2018
  2. IBRANCE [Suspect]
     Active Substance: PALBOCICLIB
     Route: 048
  3. IBRANCE [Suspect]
     Active Substance: PALBOCICLIB
     Route: 048
     Dates: start: 20221130
  4. IBRANCE [Suspect]
     Active Substance: PALBOCICLIB
     Route: 048
     Dates: start: 20221215
  5. IBRANCE [Suspect]
     Active Substance: PALBOCICLIB
     Route: 048
  6. IBRANCE [Suspect]
     Active Substance: PALBOCICLIB
     Route: 048
     Dates: start: 20240121
  7. AMLODIPINE [Concomitant]
     Active Substance: AMLODIPINE BESYLATE
  8. BENAZEPRIL AND HYDROCHLOROTHIAZIDE [Concomitant]
     Active Substance: BENAZEPRIL HYDROCHLORIDE\HYDROCHLOROTHIAZIDE
  9. CALCIUM [Concomitant]
     Active Substance: CALCIUM
  10. CITALOPRAM [Concomitant]
     Active Substance: CITALOPRAM
  11. LETROZOLE [Concomitant]
     Active Substance: LETROZOLE
  12. OMEPRAZOLE [Concomitant]
     Active Substance: OMEPRAZOLE
  13. VITAMINS [Concomitant]
     Active Substance: VITAMINS
  14. SIMVASTATIN [Concomitant]
     Active Substance: SIMVASTATIN

REACTIONS (3)
  - Skin ulcer [Not Recovered/Not Resolved]
  - Abdominal pain upper [Unknown]
  - Hypoacusis [Unknown]
